FAERS Safety Report 7553739-3 (Version None)
Quarter: 2011Q2

REPORT INFORMATION
  Report Type: 
  Country: None (occurrence: None)
  Receive Date: 20110609
  Receipt Date: 20110526
  Transmission Date: 20111010
  Serious: Yes (Death, Life-Threatening, Hospitalization)
  Sender: FDA-Public Use
  Company Number: 1000021391

PATIENT
  Age: 81 Year
  Sex: Female
  Weight: 49 kg

DRUGS (4)
  1. SPIRIVA [Concomitant]
  2. ROFLUMILAST (ROFLUMILAST) (TABLETS) [Suspect]
     Indication: CHRONIC OBSTRUCTIVE PULMONARY DISEASE
     Dosage: 500 MCG (1 IN 1 D), ORAL
     Route: 048
     Dates: start: 20110310
  3. PROTELOS (STRONTIUM RANELATE) [Concomitant]
  4. PREDNISOLONE [Concomitant]

REACTIONS (6)
  - PNEUMONIA [None]
  - LEUKOCYTOSIS [None]
  - GENERAL PHYSICAL HEALTH DETERIORATION [None]
  - TACHYARRHYTHMIA [None]
  - SYSTEMIC INFLAMMATORY RESPONSE SYNDROME [None]
  - RESPIRATORY RATE INCREASED [None]
